FAERS Safety Report 5766504-4 (Version None)
Quarter: 2008Q2

REPORT INFORMATION
  Report Type: 
  Country: None (occurrence: None)
  Receive Date: 20080611
  Receipt Date: 20080528
  Transmission Date: 20081010
  Serious: Yes (Other)
  Sender: FDA-Public Use
  Company Number: JP-GENENTECH-261815

PATIENT
  Sex: Male
  Weight: 50 kg

DRUGS (4)
  1. AVASTIN [Suspect]
     Indication: RECTAL CANCER
     Dosage: 5 MG/KG, Q2W
     Route: 041
     Dates: start: 20080329, end: 20080509
  2. OXALIPLATIN [Concomitant]
     Indication: RECTAL CANCER
     Dates: start: 20071214
  3. FLUOROURACIL [Concomitant]
     Indication: RECTAL CANCER
     Dates: start: 20071214
  4. ISOVORIN [Concomitant]
     Indication: RECTAL CANCER
     Dates: start: 20071214

REACTIONS (2)
  - HYPOTENSION [None]
  - SHOCK [None]
